FAERS Safety Report 8031404-6 (Version None)
Quarter: 2012Q1

REPORT INFORMATION
  Report Type: 
  Country: None (occurrence: None)
  Receive Date: 20120109
  Receipt Date: 20120103
  Transmission Date: 20120608
  Serious: Yes (Hospitalization, Other)
  Sender: FDA-Public Use
  Company Number: GB-ABBOTT-11P-167-0863038-00

PATIENT
  Sex: Male

DRUGS (5)
  1. FOLIC ACID [Concomitant]
     Indication: NUTRITIONAL SUPPORT
     Route: 048
  2. LOMOTIL [Concomitant]
     Indication: DIARRHOEA
     Route: 048
  3. HUMIRA [Suspect]
     Indication: CROHN'S DISEASE
     Route: 058
     Dates: start: 20110915, end: 20111010
  4. HUMIRA [Suspect]
     Indication: POUCHITIS
  5. OMEPRAZOLE [Concomitant]
     Indication: DYSPEPSIA
     Route: 048

REACTIONS (5)
  - RENAL IMPAIRMENT [None]
  - DEHYDRATION [None]
  - POUCHITIS [None]
  - DIABETES MELLITUS [None]
  - DRUG INEFFECTIVE [None]
